FAERS Safety Report 26181269 (Version 1)
Quarter: 2025Q4

REPORT INFORMATION
  Report Type: Spontaneous
  Country: US (occurrence: US)
  Receive Date: 20251221
  Receipt Date: 20251221
  Transmission Date: 20260117
  Serious: Yes (Hospitalization, Other)
  Sender: ASTELLAS
  Company Number: US-ASTELLAS-2025-AER-069547

PATIENT
  Age: 53 Year
  Sex: Male

DRUGS (1)
  1. TACROLIMUS [Suspect]
     Active Substance: TACROLIMUS
     Indication: Renal transplant
     Route: 065

REACTIONS (6)
  - Thrombotic thrombocytopenic purpura [Recovering/Resolving]
  - Necrosis ischaemic [Recovering/Resolving]
  - Arterial thrombosis [Recovering/Resolving]
  - Thrombosis [Recovering/Resolving]
  - Hypoperfusion [Recovering/Resolving]
  - Graft complication [Recovering/Resolving]
